FAERS Safety Report 7967869-5 (Version None)
Quarter: 2011Q4

REPORT INFORMATION
  Report Type: 
  Country: None (occurrence: None)
  Receive Date: 20111209
  Receipt Date: 20111125
  Transmission Date: 20120403
  Serious: Yes (Hospitalization)
  Sender: FDA-Public Use
  Company Number: FR-ROCHE-1003430

PATIENT
  Sex: Male
  Weight: 72 kg

DRUGS (4)
  1. MYCOPHENOLATE MOFETIL (CELLCEPT) [Suspect]
     Dosage: DOSE REDUCED 95
  2. PREDNISONE [Suspect]
     Indication: TRANSPLANT REJECTION
     Dosage: DRUG NAME: CORTANCYL
     Route: 002
     Dates: start: 20110925
  3. EVEROLIMUS [Suspect]
     Indication: TRANSPLANT REJECTION
     Dosage: 1.5 (UNIT NOT REPORTED) PERMANENTLY DISCONTINUED
     Route: 002
     Dates: start: 20110924, end: 20111006
  4. MYCOPHENOLATE MOFETIL (CELLCEPT) [Suspect]
     Indication: TRANSPLANT REJECTION
     Dosage: DOSE: 75
     Route: 002
     Dates: start: 20110919

REACTIONS (4)
  - IMPAIRED HEALING [None]
  - THROMBOCYTOPENIA [None]
  - SCAR [None]
  - PANCYTOPENIA [None]
